FAERS Safety Report 4907871-0 (Version None)
Quarter: 2006Q1

REPORT INFORMATION
  Report Type: 
  Country: None (occurrence: None)
  Receive Date: 20060210
  Receipt Date: 20060202
  Transmission Date: 20060701
  Serious: Yes (Other)
  Sender: FDA-Public Use
  Company Number: US-BRISTOL-MYERS SQUIBB COMPANY-13271036

PATIENT
  Age: 6 Decade
  Sex: Male

DRUGS (2)
  1. ERBITUX [Suspect]
     Indication: COLORECTAL CANCER METASTATIC
     Dates: start: 20000101, end: 20060101
  2. BENADRYL [Concomitant]
     Indication: PREMEDICATION
     Dates: start: 20060101, end: 20060101

REACTIONS (2)
  - ANAPHYLACTIC SHOCK [None]
  - CARDIO-RESPIRATORY ARREST [None]
